FAERS Safety Report 7332302-3 (Version None)
Quarter: 2011Q1

REPORT INFORMATION
  Report Type: 
  Country: None (occurrence: None)
  Receive Date: 20110304
  Receipt Date: 20110222
  Transmission Date: 20110831
  Serious: Yes (Other)
  Sender: FDA-Public Use
  Company Number: US-ROCHE-762186

PATIENT
  Age: 80 Year
  Sex: Male

DRUGS (1)
  1. AVASTIN [Suspect]
     Dosage: START DATE: BEFORE JANUARY 2009, FREQUENCY: ONCE
     Route: 031

REACTIONS (2)
  - SCAR [None]
  - VISUAL ACUITY REDUCED [None]
